FAERS Safety Report 8987918 (Version 5)
Quarter: 2013Q2

REPORT INFORMATION
  Report Type: Spontaneous
  Country: US (occurrence: US)
  Receive Date: 20121227
  Receipt Date: 20130531
  Transmission Date: 20140414
  Serious: Yes (Hospitalization, Other)
  Sender: FDA-Public Use
  Company Number: US-009507513-1212USA009951

PATIENT
  Sex: Female

DRUGS (5)
  1. FOSAMAX [Suspect]
     Indication: OSTEOPOROSIS
     Dosage: 70 MG, UNK
     Route: 048
     Dates: end: 200506
  2. FOSAMAX [Suspect]
     Dosage: UNK
     Route: 048
     Dates: start: 1996
  3. FOSAMAX PLUS D [Suspect]
     Indication: OSTEOPOROSIS
     Dosage: 70 MG, UNK
     Route: 048
     Dates: start: 200507, end: 201106
  4. VITAMINS (UNSPECIFIED) [Concomitant]
     Dosage: UNK
     Dates: start: 200001
  5. CYANOCOBALAMIN [Concomitant]
     Dosage: UNK
     Dates: start: 199706

REACTIONS (13)
  - Femur fracture [Unknown]
  - Open reduction of fracture [Unknown]
  - Fall [Unknown]
  - Femur fracture [Unknown]
  - Intramedullary rod insertion [Unknown]
  - Body height decreased [Unknown]
  - Fracture [Unknown]
  - Osteopenia [Unknown]
  - Vitamin D deficiency [Unknown]
  - Intervertebral disc degeneration [Unknown]
  - Lung disorder [Not Recovered/Not Resolved]
  - Gout [Unknown]
  - Fall [Unknown]
